FAERS Safety Report 21942523 (Version 1)
Quarter: 2023Q1

REPORT INFORMATION
  Report Type: Report from Study
  Country: US (occurrence: US)
  Receive Date: 20230202
  Receipt Date: 20230202
  Transmission Date: 20230418
  Serious: No
  Sender: FDA-Public Use
  Company Number: US-EXELIXIS-CABO-22057876

PATIENT
  Age: 74 Year
  Sex: Female

DRUGS (1)
  1. CABOMETYX [Suspect]
     Active Substance: CABOZANTINIB S-MALATE
     Indication: Renal cancer
     Dosage: 40 MG, QD
     Route: 048

REACTIONS (15)
  - Chest discomfort [Unknown]
  - Chills [Unknown]
  - Erythema [Unknown]
  - Somnolence [Unknown]
  - Hypothyroidism [Unknown]
  - Fatigue [Unknown]
  - Cough [Unknown]
  - Diarrhoea [Unknown]
  - Nausea [Unknown]
  - Vomiting [Unknown]
  - Weight decreased [Unknown]
  - Blood pressure increased [Unknown]
  - Stomatitis [Unknown]
  - Bone lesion [Unknown]
  - Back pain [Unknown]

NARRATIVE: CASE EVENT DATE: 20220401
